FAERS Safety Report 14631771 (Version 2)
Quarter: 2018Q2

REPORT INFORMATION
  Report Type: Spontaneous
  Country: US (occurrence: US)
  Receive Date: 20180313
  Receipt Date: 20180413
  Transmission Date: 20180711
  Serious: Yes (Death)
  Sender: FDA-Public Use
  Company Number: US-VERTEX PHARMACEUTICALS-2018-001650

PATIENT
  Age: 32 Year
  Sex: Female

DRUGS (5)
  1. KALYDECO [Suspect]
     Active Substance: IVACAFTOR
     Indication: CYSTIC FIBROSIS
     Dosage: 1 TABLET (150 MG), BID
     Route: 048
     Dates: start: 20120412, end: 201802
  2. COLISTIMETHATE [Concomitant]
     Active Substance: COLISTIMETHATE SODIUM
  3. DULERA [Concomitant]
     Active Substance: FORMOTEROL FUMARATE DIHYDRATE\MOMETASONE FUROATE
  4. URSODIOL. [Concomitant]
     Active Substance: URSODIOL
  5. PULMOZYME [Concomitant]
     Active Substance: DORNASE ALFA

REACTIONS (1)
  - Death [Fatal]

NARRATIVE: CASE EVENT DATE: 20180224
